FAERS Safety Report 8772188 (Version 1)
Quarter: 2012Q4

REPORT INFORMATION
  Report Type: 
  Country: GB (occurrence: GB)
  Receive Date: 20120905
  Receipt Date: 20120905
  Transmission Date: 20130627
  Serious: Yes (Life-Threatening, Hospitalization, Disabling)
  Sender: FDA-Public Use
  Company Number: GB-MYLANLABS-2012S1017571

PATIENT
  Age: 47 Year
  Sex: Female

DRUGS (2)
  1. BACLOFEN [Suspect]
     Indication: PRODUCT USED FOR UNKNOWN INDICATION
     Route: 048
     Dates: start: 201203
  2. DISULFIRAM [Suspect]
     Indication: ALCOHOLISM
     Route: 048
     Dates: start: 20120622, end: 20120723

REACTIONS (1)
  - Hepatitis acute [Recovering/Resolving]
